FAERS Safety Report 10784030 (Version 5)
Quarter: 2021Q2

REPORT INFORMATION
  Report Type: Report from Study
  Country: US (occurrence: US)
  Receive Date: 20150211
  Receipt Date: 20210527
  Transmission Date: 20210716
  Serious: Yes (Other)
  Sender: FDA-Public Use
  Company Number: US-AMGEN-USASL2015009933

PATIENT
  Age: 45 Year
  Sex: Female

DRUGS (6)
  1. ENBREL [Suspect]
     Active Substance: ETANERCEPT
     Indication: RHEUMATOID ARTHRITIS
     Dosage: 50 MILLIGRAM, QWK
     Route: 065
     Dates: start: 20141001
  2. ENBREL [Suspect]
     Active Substance: ETANERCEPT
     Dosage: 50 MILLIGRAM, QWK
     Route: 065
  3. ENBREL [Suspect]
     Active Substance: ETANERCEPT
     Dosage: 50 MILLIGRAM, QWK
     Route: 065
  4. METHOTREXATE. [Concomitant]
     Active Substance: METHOTREXATE
     Dosage: 4 TAB WEEKLY
     Dates: start: 201311
  5. ENBREL [Suspect]
     Active Substance: ETANERCEPT
     Dosage: 50 MILLIGRAM, QWK
     Route: 065
     Dates: start: 201601
  6. PLAQUENIL [Concomitant]
     Active Substance: HYDROXYCHLOROQUINE SULFATE

REACTIONS (14)
  - Breast cancer [Recovered/Resolved]
  - Therapeutic product effect decreased [Unknown]
  - Sinus disorder [Not Recovered/Not Resolved]
  - Therapeutic response unexpected [Unknown]
  - Lymphadenopathy [Not Recovered/Not Resolved]
  - Asthenia [Unknown]
  - Oropharyngeal pain [Not Recovered/Not Resolved]
  - Hypersensitivity [Unknown]
  - Decreased appetite [Unknown]
  - Urinary tract infection [Not Recovered/Not Resolved]
  - Blood glucose decreased [Unknown]
  - Fatigue [Unknown]
  - Weight decreased [Unknown]
  - Illness [Unknown]

NARRATIVE: CASE EVENT DATE: 201410
